FAERS Safety Report 26209240 (Version 1)
Quarter: 2025Q4

REPORT INFORMATION
  Report Type: Spontaneous
  Country: MX (occurrence: MX)
  Receive Date: 20251229
  Receipt Date: 20251229
  Transmission Date: 20260117
  Serious: Yes (Other)
  Sender: NOVO NORDISK
  Company Number: MX-NOVOPROD-1592290

PATIENT
  Age: 65 Year
  Sex: Male
  Weight: 205 kg

DRUGS (4)
  1. RYBELSUS [Suspect]
     Active Substance: SEMAGLUTIDE
     Indication: Type 2 diabetes mellitus
     Dosage: 3 MG, QD
     Dates: start: 202502
  2. RYBELSUS [Suspect]
     Active Substance: SEMAGLUTIDE
     Dosage: 7 MG, QD(DOSE DECREASED)
  3. RYBELSUS [Suspect]
     Active Substance: SEMAGLUTIDE
     Dosage: 14 MG, QD
     Dates: start: 20250414
  4. RYBELSUS [Suspect]
     Active Substance: SEMAGLUTIDE
     Dosage: 7 MG, QD
     Dates: start: 20250314

REACTIONS (5)
  - Syncope [Recovering/Resolving]
  - Limb injury [Recovering/Resolving]
  - Skin discolouration [Unknown]
  - Dizziness [Recovering/Resolving]
  - Decreased appetite [Recovering/Resolving]

NARRATIVE: CASE EVENT DATE: 20250414
